FAERS Safety Report 17219558 (Version 3)
Quarter: 2020Q4

REPORT INFORMATION
  Report Type: Spontaneous
  Country: US (occurrence: US)
  Receive Date: 20191231
  Receipt Date: 20201104
  Transmission Date: 20210113
  Serious: No
  Sender: FDA-Public Use
  Company Number: US-PFIZER INC-2019470545

PATIENT
  Age: 51 Year
  Sex: Male

DRUGS (3)
  1. SUTENT [Suspect]
     Active Substance: SUNITINIB MALATE
     Indication: RENAL CANCER
     Dosage: 50 MG, CYCLIC (4 WEEKS ON, 2 WEEKS OFF)
     Route: 048
     Dates: start: 20190911, end: 20191008
  2. SUTENT [Suspect]
     Active Substance: SUNITINIB MALATE
     Dosage: 50 MG, CYCLIC (4 WEEKS ON, 2 WEEKS OFF)
     Route: 048
     Dates: start: 201910, end: 20191125
  3. SUTENT [Suspect]
     Active Substance: SUNITINIB MALATE
     Dosage: 50 MG, CYCLIC (4 WEEKS ON, 2 WEEKS OFF)
     Route: 048
     Dates: start: 201910

REACTIONS (2)
  - Neoplasm progression [Unknown]
  - Fatigue [Unknown]
